FAERS Safety Report 8885366 (Version 1)
Quarter: 2012Q4

REPORT INFORMATION
  Report Type: 
  Country: US (occurrence: US)
  Receive Date: 20121101
  Receipt Date: 20121101
  Transmission Date: 20130627
  Serious: Yes (Other)
  Sender: FDA-Public Use
  Company Number: US-ROCHE-1147633

PATIENT
  Sex: Male

DRUGS (4)
  1. RITUXAN [Suspect]
     Indication: NEUROPATHY PERIPHERAL
     Route: 065
  2. RITUXAN [Suspect]
     Indication: DEPRESSION
  3. PAXIL [Concomitant]
  4. IGG [Concomitant]

REACTIONS (8)
  - Muscle contractions involuntary [Unknown]
  - Asthenia [Unknown]
  - Muscular weakness [Unknown]
  - Headache [Unknown]
  - Aphasia [Unknown]
  - Hyperhidrosis [Unknown]
  - Nausea [Unknown]
  - Vomiting [Unknown]
